FAERS Safety Report 7737469-0 (Version None)
Quarter: 2011Q3

REPORT INFORMATION
  Report Type: 
  Country: None (occurrence: None)
  Receive Date: 20110908
  Receipt Date: 20110831
  Transmission Date: 20111222
  Serious: Yes (Hospitalization, Other)
  Sender: FDA-Public Use
  Company Number: US-GLAXOSMITHKLINE-A0940513A

PATIENT
  Age: 9 Year
  Sex: Female

DRUGS (1)
  1. LAMOTRIGINE [Suspect]
     Indication: CONVULSION
     Dosage: 25MG TWICE PER DAY
     Route: 048
     Dates: start: 20110711, end: 20110804

REACTIONS (4)
  - SWELLING FACE [None]
  - CONJUNCTIVITIS [None]
  - EYE INFLAMMATION [None]
  - RASH MACULAR [None]
